FAERS Safety Report 4944663-0 (Version None)
Quarter: 2006Q1

REPORT INFORMATION
  Report Type: 
  Country: None (occurrence: None)
  Receive Date: 20060123
  Receipt Date: 20050524
  Transmission Date: 20060701
  Serious: Yes (Other)
  Sender: FDA-Public Use
  Company Number: HQWYE830204AUG04

PATIENT
  Age: 61 Year
  Sex: Female
  Weight: 64.92 kg

DRUGS (4)
  1. PREMPRO (CONJUGATED  ACETATE, TABLET, 2.5 MG) [Suspect]
     Dosage: 0.625MG/2.5MG DAILY, ORAL
     Route: 048
     Dates: start: 19950101
  2. MEDROXYPROGESTERONE [Suspect]
     Dosage: ORAL
     Route: 048
     Dates: start: 19940101
  3. PREMARIN [Suspect]
     Dosage: 0.625MG DAILY, ORAL
     Route: 048
     Dates: start: 19911119, end: 20020701
  4. PROVERA [Suspect]
     Dosage: 5 MG 1X PER 1 DAY, ORAL
     Route: 048

REACTIONS (1)
  - BREAST CANCER [None]
